FAERS Safety Report 17251375 (Version 1)
Quarter: 2020Q1

REPORT INFORMATION
  Report Type: Spontaneous
  Country: US (occurrence: US)
  Receive Date: 20200108
  Receipt Date: 20200108
  Transmission Date: 20200409
  Serious: Yes (Life-Threatening, Hospitalization)
  Sender: FDA-Public Use
  Company Number: None

PATIENT
  Age: 53 Year
  Sex: Female
  Weight: 58.5 kg

DRUGS (7)
  1. BCOMPLEX [Concomitant]
  2. FE [Concomitant]
     Active Substance: IRON
  3. VITAMIN D3 [Concomitant]
     Active Substance: CHOLECALCIFEROL
  4. DICLOFENAC SODIUM 75 MG DR TABLETS [Suspect]
     Active Substance: DICLOFENAC SODIUM
     Indication: NECK INJURY
     Dosage: ?          QUANTITY:1 TABLET(S);?
     Route: 048
     Dates: start: 20190206, end: 20191220
  5. DICLOFENAC SODIUM 75 MG DR TABLETS [Suspect]
     Active Substance: DICLOFENAC SODIUM
     Indication: BACK INJURY
     Dosage: ?          QUANTITY:1 TABLET(S);?
     Route: 048
     Dates: start: 20190206, end: 20191220
  6. CA [Concomitant]
  7. MULTI VITAMIN [Concomitant]
     Active Substance: VITAMINS

REACTIONS (8)
  - Peripheral swelling [None]
  - Paraesthesia [None]
  - Pain in extremity [None]
  - Erythema [None]
  - Dyspnoea [None]
  - Drug hypersensitivity [None]
  - Middle insomnia [None]
  - Urticaria [None]

NARRATIVE: CASE EVENT DATE: 20191221
